FAERS Safety Report 9557487 (Version 2)
Quarter: 2013Q4

REPORT INFORMATION
  Report Type: Spontaneous
  Country: US (occurrence: US)
  Receive Date: 20130926
  Receipt Date: 20131001
  Transmission Date: 20140711
  Serious: No
  Sender: FDA-Public Use
  Company Number: US-BAYER-2013-116631

PATIENT
  Age: 29 Year
  Sex: Male
  Weight: 91 kg

DRUGS (1)
  1. ALEVE CAPLET [Suspect]
     Indication: ARTHRITIS
     Dosage: 2 DF,QD
     Route: 048
     Dates: start: 2012

REACTIONS (2)
  - Drug ineffective [None]
  - Incorrect drug administration duration [None]
